FAERS Safety Report 8399007-1 (Version None)
Quarter: 2012Q1

REPORT INFORMATION
  Report Type: 
  Country: None (occurrence: None)
  Receive Date: 20120323
  Receipt Date: 20110215
  Transmission Date: 20120608
  Serious: Yes (Hospitalization)
  Sender: FDA-Public Use
  Company Number: 163-21880-11010616

PATIENT
  Age: 80 Year
  Sex: Male
  Weight: 84.8226 kg

DRUGS (25)
  1. REVLIMID [Suspect]
     Indication: MYELODYSPLASTIC SYNDROME
     Dosage: 10 MG, QD X 21 DAYS, PO
     Route: 048
     Dates: start: 20100825, end: 20110103
  2. ASPIRIN [Concomitant]
  3. AVELOX [Concomitant]
  4. KLOR-CON [Concomitant]
  5. PREVACID [Concomitant]
  6. QVAR [Concomitant]
  7. MULTIVITAMIN [Concomitant]
  8. EXJADE [Concomitant]
  9. FINASTERIDE [Concomitant]
  10. LISINOPRIL [Concomitant]
  11. SERTRALINE HYDROCHLORIDE [Concomitant]
  12. TOPROL-XL [Concomitant]
  13. FUROSEMIDE [Concomitant]
  14. NITROGLYCERIN [Concomitant]
  15. ACETAMINOPHEN [Concomitant]
  16. VIDAZA [Concomitant]
  17. CRESTOR [Concomitant]
  18. SINGULAIR [Concomitant]
  19. HYDROCODONE BITARTRATE [Concomitant]
  20. PLAVIX [Concomitant]
  21. DEXAMETHASONE [Concomitant]
  22. ADVAIR HFA [Concomitant]
  23. FAMCICLOVIR [Concomitant]
  24. ERYTHROPOIETIN (ERYTHROPOIETIN) [Concomitant]
  25. ALBUTEROL [Concomitant]

REACTIONS (3)
  - PNEUMONIA [None]
  - ANAEMIA [None]
  - SEPSIS [None]
